FAERS Safety Report 6578917-1 (Version None)
Quarter: 2010Q1

REPORT INFORMATION
  Report Type: 
  Country: None (occurrence: None)
  Receive Date: 20100212
  Receipt Date: 20100209
  Transmission Date: 20100710
  Serious: Yes (Hospitalization)
  Sender: FDA-Public Use
  Company Number: US-BIOGENIDEC-2010BI002817

PATIENT
  Age: 59 Year
  Sex: Male

DRUGS (3)
  1. AVONEX [Suspect]
     Indication: MULTIPLE SCLEROSIS
     Route: 030
     Dates: start: 20020601, end: 20020101
  2. AVONEX [Suspect]
     Route: 030
     Dates: start: 20020701, end: 20030801
  3. AVONEX [Suspect]
     Route: 030
     Dates: start: 20030801

REACTIONS (2)
  - FALL [None]
  - FEMORAL NECK FRACTURE [None]
